FAERS Safety Report 5994471-7 (Version None)
Quarter: 2008Q4

REPORT INFORMATION
  Report Type: 
  Country: None (occurrence: None)
  Receive Date: 20081212
  Receipt Date: 20080612
  Transmission Date: 20090506
  Serious: No
  Sender: FDA-Public Use
  Company Number: US-AMGEN-KDL286930

PATIENT
  Sex: Male

DRUGS (2)
  1. ENBREL [Suspect]
     Indication: PSORIATIC ARTHROPATHY
     Route: 058
     Dates: start: 20080305
  2. LEFLUNOMIDE [Concomitant]
     Dates: start: 20070731

REACTIONS (3)
  - DIZZINESS [None]
  - RASH [None]
  - VISUAL IMPAIRMENT [None]
